FAERS Safety Report 13379977 (Version 11)
Quarter: 2020Q1

REPORT INFORMATION
  Report Type: Report from Study
  Country: US (occurrence: US)
  Receive Date: 20170328
  Receipt Date: 20200211
  Transmission Date: 20200409
  Serious: Yes (Hospitalization)
  Sender: FDA-Public Use
  Company Number: US-ACTELION-A-US2016-140435

PATIENT
  Age: 66 Year
  Sex: Female
  Weight: 61.68 kg

DRUGS (9)
  1. OXYGEN. [Concomitant]
     Active Substance: OXYGEN
     Dosage: 4 L/MIN, UNK
  2. VELETRI [Suspect]
     Active Substance: EPOPROSTENOL
     Dosage: 56 NG/KG, PER MIN
     Route: 042
  3. VELETRI [Suspect]
     Active Substance: EPOPROSTENOL
     Dosage: 42 NG/KG, PER MIN
     Route: 042
  4. VELETRI [Suspect]
     Active Substance: EPOPROSTENOL
     Dosage: 28 NG/KG, PER MIN
     Route: 042
  5. VELETRI [Suspect]
     Active Substance: EPOPROSTENOL
     Indication: PULMONARY HYPERTENSION
     Dosage: 61 NG/KG, PER MIN
     Route: 042
  6. VELETRI [Suspect]
     Active Substance: EPOPROSTENOL
     Dosage: UNK
     Route: 042
     Dates: start: 20161108
  7. VELETRI [Suspect]
     Active Substance: EPOPROSTENOL
     Dosage: 12 NG/KG, PER MIN
     Route: 042
  8. DILTIAZEM. [Concomitant]
     Active Substance: DILTIAZEM
  9. OXYGEN. [Concomitant]
     Active Substance: OXYGEN
     Dosage: 5 L/MIN, UNK

REACTIONS (18)
  - Dizziness [Unknown]
  - Nausea [Unknown]
  - Dyspnoea exertional [Unknown]
  - Weight decreased [Unknown]
  - Nasopharyngitis [Unknown]
  - Dyspnoea [Unknown]
  - Vomiting [Unknown]
  - Thrombosis in device [Unknown]
  - Cardiac failure [Unknown]
  - Candida infection [Unknown]
  - Rhinorrhoea [Unknown]
  - Catheter management [Unknown]
  - Device malfunction [Unknown]
  - Pneumonia [Unknown]
  - Emergency care [Unknown]
  - Balance disorder [Unknown]
  - Device breakage [Unknown]
  - Diarrhoea [Unknown]

NARRATIVE: CASE EVENT DATE: 20190725
